FAERS Safety Report 21054595 (Version 3)
Quarter: 2022Q3

REPORT INFORMATION
  Report Type: Spontaneous
  Country: US (occurrence: US)
  Receive Date: 20220707
  Receipt Date: 20220708
  Transmission Date: 20221027
  Serious: Yes (Other)
  Sender: FDA-Public Use
  Company Number: US-PFIZER INC-202200920595

PATIENT

DRUGS (1)
  1. ARGATROBAN [Suspect]
     Active Substance: ARGATROBAN
     Indication: Thrombosis
     Dosage: (MAX IS 10)

REACTIONS (2)
  - Off label use [Unknown]
  - Drug ineffective [Unknown]
